FAERS Safety Report 22979943 (Version 2)
Quarter: 2025Q1

REPORT INFORMATION
  Report Type: Spontaneous
  Country: US (occurrence: US)
  Receive Date: 20230925
  Receipt Date: 20250120
  Transmission Date: 20250409
  Serious: No
  Sender: SANOFI AVENTIS
  Company Number: US-SANOFI-01768498

PATIENT
  Age: 83 Year
  Sex: Male

DRUGS (2)
  1. DUPIXENT [Suspect]
     Active Substance: DUPILUMAB
     Indication: Eczema
     Dosage: 300 MG, QOW
     Dates: start: 2021
  2. HYDROGEN PEROXIDE [Concomitant]
     Active Substance: HYDROGEN PEROXIDE

REACTIONS (3)
  - Pruritus [Recovered/Resolved]
  - Skin exfoliation [Unknown]
  - Rash [Unknown]
